FAERS Safety Report 4509874-7 (Version None)
Quarter: 2004Q4

REPORT INFORMATION
  Report Type: 
  Country: None (occurrence: None)
  Receive Date: 20041124
  Receipt Date: 20041119
  Transmission Date: 20050328
  Serious: Yes (Death)
  Sender: FDA-Public Use
  Company Number: US-BRISTOL-MYERS SQUIBB COMPANY-12771002

PATIENT
  Age: 53 Year
  Sex: Female

DRUGS (2)
  1. PARAPLATIN [Suspect]
     Dates: start: 20040708, end: 20040708
  2. TAXOL [Suspect]
     Dates: start: 20040708, end: 20040708

REACTIONS (1)
  - DEATH [None]
